FAERS Safety Report 5199409-0 (Version None)
Quarter: 2006Q4

REPORT INFORMATION
  Report Type: 
  Country: None (occurrence: None)
  Receive Date: 20061016
  Receipt Date: 20060724
  Transmission Date: 20070319
  Serious: No
  Sender: FDA-Public Use
  Company Number: 2006SP002780

PATIENT
  Age: 70 Year
  Sex: Female

DRUGS (2)
  1. LUNESTA [Suspect]
     Indication: INSOMNIA
     Dosage: 3 MG;ORAL
     Route: 048
     Dates: start: 20060722
  2. TEMAZEPAM [Concomitant]

REACTIONS (4)
  - DIZZINESS [None]
  - DYSGEUSIA [None]
  - HEADACHE [None]
  - MIDDLE INSOMNIA [None]
